FAERS Safety Report 6239662-5 (Version None)
Quarter: 2009Q2

REPORT INFORMATION
  Report Type: 
  Country: None (occurrence: None)
  Receive Date: 20090619
  Receipt Date: 20090603
  Transmission Date: 20091009
  Serious: Yes (Other)
  Sender: FDA-Public Use
  Company Number: ACO_00558_2009

PATIENT
  Age: 18 Month
  Sex: Male

DRUGS (4)
  1. TERNELIN             (TERNELIN - TIZANIDINE HYDROCHLORIDE) (NOT SPECIF [Suspect]
     Indication: DRUG USE FOR UNKNOWN INDICATION
     Dosage: (DF)
  2. VALPROATE SODIUM (UNKNOWN) [Concomitant]
  3. ZONISAMIDE (UNKNOWN) [Concomitant]
  4. POTASSIUM BROMIDE (UNKNOWN) [Concomitant]

REACTIONS (1)
  - NEUROLEPTIC MALIGNANT SYNDROME [None]
